FAERS Safety Report 11842185 (Version 1)
Quarter: 2015Q4

REPORT INFORMATION
  Report Type: Spontaneous
  Country: US (occurrence: US)
  Receive Date: 20151216
  Receipt Date: 20151216
  Transmission Date: 20160305
  Serious: No
  Sender: FDA-Public Use
  Company Number: US-RB-074086-15

PATIENT
  Age: 9 Year
  Sex: Male

DRUGS (1)
  1. DELSYM [Suspect]
     Active Substance: DEXTROMETHORPHAN
     Indication: PRODUCT USED FOR UNKNOWN INDICATION
     Dosage: 5ML. TOOK 4 TEASPOONS OF PRODUCT: LAST USED THE PRODUCT ON 26-FEB-2015,FREQUENCY UNK
     Route: 065
     Dates: start: 20150226

REACTIONS (4)
  - Fatigue [Not Recovered/Not Resolved]
  - Accidental overdose [Not Recovered/Not Resolved]
  - Dizziness [Not Recovered/Not Resolved]
  - Somnolence [Not Recovered/Not Resolved]

NARRATIVE: CASE EVENT DATE: 20150226
